FAERS Safety Report 23622136 (Version 1)
Quarter: 2024Q1

REPORT INFORMATION
  Report Type: Spontaneous
  Country: BR (occurrence: BR)
  Receive Date: 20240312
  Receipt Date: 20240312
  Transmission Date: 20240410
  Serious: Yes (Other)
  Sender: FDA-Public Use
  Company Number: BR-TAKEDA-2024TUS021550

PATIENT
  Sex: Female

DRUGS (6)
  1. LISDEXAMFETAMINE DIMESYLATE [Suspect]
     Active Substance: LISDEXAMFETAMINE DIMESYLATE
     Indication: Weight decreased
     Dosage: 1 DOSAGE FORM, QD
     Route: 065
  2. LISDEXAMFETAMINE DIMESYLATE [Suspect]
     Active Substance: LISDEXAMFETAMINE DIMESYLATE
     Indication: Decreased appetite
  3. Deller [Concomitant]
     Indication: Depression
  4. Deller [Concomitant]
     Indication: Panic disorder
  5. ESTRADIOL [Concomitant]
     Active Substance: ESTRADIOL
     Indication: Menopause
  6. PURAN [Concomitant]
     Active Substance: LEVOTHYROXINE SODIUM
     Indication: Hyperthyroidism
     Dosage: UNK

REACTIONS (10)
  - Endometriosis [Unknown]
  - Product outer packaging issue [Unknown]
  - Drug ineffective [Unknown]
  - Visual impairment [Unknown]
  - Fear [Unknown]
  - Crying [Unknown]
  - Patient dissatisfaction with treatment [Unknown]
  - Withdrawal syndrome [Unknown]
  - Product use issue [Unknown]
  - Off label use [Unknown]
